FAERS Safety Report 4315080-1 (Version None)
Quarter: 2004Q1

REPORT INFORMATION
  Report Type: 
  Country: None (occurrence: None)
  Receive Date: 20040310
  Receipt Date: 20040209
  Transmission Date: 20041129
  Serious: Yes (Other)
  Sender: FDA-Public Use
  Company Number: BE-ROCHE-359168

PATIENT
  Age: 50 Year
  Sex: Female
  Weight: 54 kg

DRUGS (3)
  1. PEGASYS [Suspect]
     Indication: HEPATITIS C
     Route: 058
     Dates: start: 20031122
  2. COPEGUS [Suspect]
     Indication: HEPATITIS C
     Dosage: DAILY.
     Route: 048
     Dates: start: 20031122
  3. DYTENZIDE [Concomitant]
     Indication: HYPERTENSION
     Dates: start: 19830615

REACTIONS (3)
  - ERYTHEMA [None]
  - OSTEOPENIA [None]
  - PRURITUS GENERALISED [None]
